FAERS Safety Report 14996825 (Version 17)
Quarter: 2022Q2

REPORT INFORMATION
  Report Type: Spontaneous
  Country: CA (occurrence: CA)
  Receive Date: 20180611
  Receipt Date: 20220509
  Transmission Date: 20220720
  Serious: Yes (Disabling, Other)
  Sender: FDA-Public Use
  Company Number: CA-PFIZER INC-2017204904

PATIENT
  Age: 51 Year
  Sex: Female

DRUGS (29)
  1. SOMATROPIN [Suspect]
     Active Substance: SOMATROPIN
     Indication: Growth hormone deficiency
     Dosage: 0.3 MG, 1X/DAY (AROUND 9AM)
     Route: 058
     Dates: start: 20170503, end: 20170506
  2. SOMATROPIN [Suspect]
     Active Substance: SOMATROPIN
     Dosage: 0.2 MG, DAILY (OD) AROUND 9 AM
     Route: 058
     Dates: start: 20170506, end: 20170509
  3. SOMATROPIN [Suspect]
     Active Substance: SOMATROPIN
     Dosage: 0.2 MG, DAILY (OD) AROUND 8 PM
     Route: 058
     Dates: start: 20170509, end: 2017
  4. SOMATROPIN [Suspect]
     Active Substance: SOMATROPIN
     Dosage: 0.2 MG, 1X/DAY (6X/WEEK)
     Route: 058
     Dates: start: 2017
  5. SOMATROPIN [Suspect]
     Active Substance: SOMATROPIN
     Dosage: 0.2 MG, 1X/DAY (5 X/WEEK)
     Route: 058
     Dates: end: 202008
  6. SOMATROPIN [Suspect]
     Active Substance: SOMATROPIN
     Dosage: 0.2 MG, 3X/WEEK
     Route: 058
     Dates: start: 202008, end: 202101
  7. SOMATROPIN [Suspect]
     Active Substance: SOMATROPIN
     Dosage: 0.3 MG, 3X/WEEK
     Route: 058
     Dates: start: 202101, end: 20210426
  8. SOMATROPIN [Suspect]
     Active Substance: SOMATROPIN
     Dosage: 0.2 MG, (5 X/WEEK)
     Route: 058
  9. SOMATROPIN [Suspect]
     Active Substance: SOMATROPIN
     Dosage: 0.2 MG 5X/WEEK
     Route: 058
     Dates: start: 20210326
  10. CRESTOR [Concomitant]
     Active Substance: ROSUVASTATIN CALCIUM
     Dosage: UNK
     Route: 065
  11. CORTEF [Concomitant]
     Active Substance: HYDROCORTISONE
     Indication: Pain
     Dosage: 10 MG, 1X/DAY IN THE MORNING/5 MG, 1X/DAY IN THE PM
     Route: 048
     Dates: start: 2013, end: 2017
  12. CORTEF [Concomitant]
     Active Substance: HYDROCORTISONE
     Indication: Pyrexia
     Dosage: 10 MG, 1X/DAY IN THE MORNING/5 MG, 1X/DAY IN THE PM
     Route: 048
  13. CORTEF [Concomitant]
     Active Substance: HYDROCORTISONE
     Indication: Malaise
     Dosage: 5 MG, AT AROUND 8 AM AND 5 MG AROUND 2 PM
     Route: 048
     Dates: start: 20170506, end: 20170506
  14. CORTEF [Concomitant]
     Active Substance: HYDROCORTISONE
     Dosage: 10MG IN THE MORNING
     Route: 048
     Dates: start: 20170507
  15. CORTEF [Concomitant]
     Active Substance: HYDROCORTISONE
     Dosage: 5MG AT AROUND 14PM
     Route: 048
     Dates: start: 20170507
  16. CORTEF [Concomitant]
     Active Substance: HYDROCORTISONE
     Dosage: 10 MG AM, 5 MG PM (LUNCHTIME)
     Route: 048
     Dates: end: 2017
  17. CORTEF [Concomitant]
     Active Substance: HYDROCORTISONE
     Dosage: 20 MG, 3X/DAY (FOR 3 DAYS PRN)
     Route: 048
  18. CORTISONE [Concomitant]
     Active Substance: CORTISONE
     Dosage: 4 MG, 1X/DAY
     Route: 065
  19. RIVOTRIL [Concomitant]
     Active Substance: CLONAZEPAM
     Dosage: 0.5 MG, AS NEEDED
     Route: 048
  20. RIVOTRIL [Concomitant]
     Active Substance: CLONAZEPAM
     Dosage: 1 MG, AT BEDTIME
     Route: 048
  21. SYNTHROID [Concomitant]
     Active Substance: LEVOTHYROXINE SODIUM
     Dosage: 0.0625 MG, 1X/DAY
  22. SYNTHROID [Concomitant]
     Active Substance: LEVOTHYROXINE SODIUM
     Dosage: 0.075 MG, DAILY
     Route: 048
     Dates: end: 2017
  23. SYNTHROID [Concomitant]
     Active Substance: LEVOTHYROXINE SODIUM
     Dosage: 0.1 MG, DAILY
     Route: 048
     Dates: start: 2017
  24. SYNTHROID [Concomitant]
     Active Substance: LEVOTHYROXINE SODIUM
     Dosage: LOWER THAN 0.1MG, 1X/DAY
     Route: 048
  25. SYNTHROID [Concomitant]
     Active Substance: LEVOTHYROXINE SODIUM
     Dosage: 0.1MG ALTERNATING WITH 0.112MG
  26. ERGOCALCIFEROL [Concomitant]
     Active Substance: ERGOCALCIFEROL
     Dosage: 1000 IU, WEEKLY
     Route: 065
  27. PREDNISONE [Concomitant]
     Active Substance: PREDNISONE
     Dosage: 3 MG, 1X/DAY (AM, WITH BREAKFAST)
     Route: 065
     Dates: start: 2017, end: 2017
  28. PREDNISONE [Concomitant]
     Active Substance: PREDNISONE
     Dosage: 4 MG
  29. PREDNISONE [Concomitant]
     Active Substance: PREDNISONE
     Dosage: 3MG-4MG AM
     Route: 065
     Dates: start: 2017

REACTIONS (28)
  - Loss of personal independence in daily activities [Unknown]
  - Blood pressure diastolic decreased [Unknown]
  - Drug ineffective [Recovering/Resolving]
  - Palpitations [Not Recovered/Not Resolved]
  - Fatigue [Not Recovered/Not Resolved]
  - Dizziness [Unknown]
  - Nausea [Unknown]
  - Headache [Unknown]
  - Insomnia [Not Recovered/Not Resolved]
  - Eye pain [Unknown]
  - Fluid retention [Not Recovered/Not Resolved]
  - Weight increased [Unknown]
  - Malaise [Unknown]
  - Drug intolerance [Unknown]
  - Stress [Unknown]
  - Menopause [Unknown]
  - Contusion [Unknown]
  - Thyroid disorder [Unknown]
  - Hormone level abnormal [Unknown]
  - Breast pain [Unknown]
  - Off label use [Unknown]
  - Peripheral swelling [Unknown]
  - Weight fluctuation [Unknown]
  - Breast discomfort [Unknown]
  - Breast swelling [Unknown]
  - Fatigue [Unknown]
  - Inflammation [Unknown]
  - Product dose omission issue [Unknown]

NARRATIVE: CASE EVENT DATE: 20170505
